FAERS Safety Report 6825851-5 (Version None)
Quarter: 2010Q3

REPORT INFORMATION
  Report Type: 
  Country: None (occurrence: None)
  Receive Date: 20100706
  Receipt Date: 20100706
  Transmission Date: 20110219
  Serious: Yes (Hospitalization)
  Sender: FDA-Public Use
  Company Number: None

PATIENT
  Sex: Female

DRUGS (1)
  1. TYLENOL-500 [Suspect]
     Indication: FIBROMYALGIA
     Dosage: 500 MG 12 HRS 2X DAY
     Dates: start: 20100529, end: 20100601

REACTIONS (1)
  - ENTEROCOLITIS INFECTIOUS [None]
